FAERS Safety Report 5069430-1 (Version None)
Quarter: 2006Q3

REPORT INFORMATION
  Report Type: 
  Country: None (occurrence: None)
  Receive Date: 20060803
  Receipt Date: 20060720
  Transmission Date: 20061208
  Serious: Yes (Hospitalization)
  Sender: FDA-Public Use
  Company Number: US-AMGEN-US187059

PATIENT
  Sex: Female

DRUGS (2)
  1. ENBREL [Suspect]
     Indication: RHEUMATOID ARTHRITIS
     Route: 058
     Dates: start: 20040101
  2. METHOTREXATE [Concomitant]
     Route: 065
     Dates: start: 20040101

REACTIONS (7)
  - ASTHMA [None]
  - BLOOD PRESSURE INCREASED [None]
  - CHEST PAIN [None]
  - GINGIVAL INFECTION [None]
  - MUSCULOSKELETAL PAIN [None]
  - PAIN IN EXTREMITY [None]
  - TOOTH INFECTION [None]
